FAERS Safety Report 5010433-0 (Version None)
Quarter: 2006Q2

REPORT INFORMATION
  Report Type: 
  Country: None (occurrence: None)
  Receive Date: 20060525
  Receipt Date: 20060516
  Transmission Date: 20061013
  Serious: Yes (Other)
  Sender: FDA-Public Use
  Company Number: PHBS2006JP07523

PATIENT
  Sex: Male

DRUGS (3)
  1. VOLTAREN [Suspect]
     Route: 048
  2. TAGAMET [Concomitant]
  3. PRORENAL [Concomitant]

REACTIONS (1)
  - URINARY RETENTION [None]
